FAERS Safety Report 8094184 (Version 3)
Quarter: 2012Q4

REPORT INFORMATION
  Report Type: 
  Country: US (occurrence: US)
  Receive Date: 20110817
  Receipt Date: 20121210
  Transmission Date: 20130627
  Serious: Yes (Other)
  Sender: FDA-Public Use
  Company Number: US-GLAXOSMITHKLINE-A0925407A

PATIENT
  Sex: Male
  Weight: 122.7 kg

DRUGS (5)
  1. AVANDIA [Suspect]
     Indication: DIABETES MELLITUS
     Dosage: 4MG Per day
     Route: 048
     Dates: start: 20020531, end: 20070524
  2. NORVASC [Concomitant]
  3. HYZAAR [Concomitant]
  4. INDOCIN [Concomitant]
  5. ZOCOR [Concomitant]

REACTIONS (4)
  - Transient ischaemic attack [Not Recovered/Not Resolved]
  - Cerebrovascular accident [Unknown]
  - Cardiac valve disease [Unknown]
  - Paralysis [Unknown]
